FAERS Safety Report 23371176 (Version 1)
Quarter: 2024Q1

REPORT INFORMATION
  Report Type: Spontaneous
  Country: FR (occurrence: FR)
  Receive Date: 20240105
  Receipt Date: 20240105
  Transmission Date: 20240409
  Serious: Yes (Hospitalization)
  Sender: FDA-Public Use
  Company Number: None

PATIENT
  Age: 77 Year
  Sex: Female
  Weight: 66 kg

DRUGS (1)
  1. VIMPAT [Suspect]
     Active Substance: LACOSAMIDE
     Indication: Epilepsy
     Dosage: 300 MILLIGRAM
     Route: 048
     Dates: start: 20230901, end: 20231130

REACTIONS (3)
  - Aggression [Recovered/Resolved]
  - Persecutory delusion [Recovered/Resolved]
  - Jealous delusion [Recovered/Resolved]

NARRATIVE: CASE EVENT DATE: 20231001
